FAERS Safety Report 14878126 (Version 2)
Quarter: 2018Q3

REPORT INFORMATION
  Report Type: Report from Study
  Country: ES (occurrence: ES)
  Receive Date: 20180510
  Receipt Date: 20180725
  Transmission Date: 20181010
  Serious: Yes (Hospitalization)
  Sender: FDA-Public Use
  Company Number: ES-TEVA-2018-ES-891713

PATIENT
  Age: 76 Year
  Sex: Male

DRUGS (1)
  1. ZEBETA [Suspect]
     Active Substance: BISOPROLOL FUMARATE
     Route: 065
     Dates: start: 201410, end: 20160915

REACTIONS (1)
  - Atrial fibrillation [Recovered/Resolved]

NARRATIVE: CASE EVENT DATE: 20160915
